FAERS Safety Report 6983365 (Version 3)
Quarter: 2013Q4

REPORT INFORMATION
  Report Type: Spontaneous
  Country: US (occurrence: US)
  Receive Date: 20090430
  Receipt Date: 20131223
  Transmission Date: 20140711
  Serious: No
  Sender: FDA-Public Use
  Company Number: US-ASTRAZENECA-2008UW28796

PATIENT
  Age: 63 Year
  Sex: Female
  Weight: 72.6 kg

DRUGS (6)
  1. NEXIUM [Suspect]
     Indication: GASTROOESOPHAGEAL REFLUX DISEASE
     Route: 048
     Dates: start: 2003
  2. NEXIUM [Suspect]
     Indication: GASTROOESOPHAGEAL REFLUX DISEASE
     Route: 048
     Dates: start: 2003
  3. ASMANEX [Concomitant]
  4. SINGULAIR [Concomitant]
  5. SEREVENT [Concomitant]
     Indication: WHEEZING
  6. PROVENTIL [Concomitant]
     Indication: WHEEZING

REACTIONS (7)
  - Bronchitis [Unknown]
  - Asthma [Unknown]
  - Gastrooesophageal reflux disease [Not Recovered/Not Resolved]
  - Oesophagitis [Unknown]
  - Wheezing [Unknown]
  - Dyspnoea [Unknown]
  - Drug ineffective [Unknown]
